FAERS Safety Report 6074576-5 (Version None)
Quarter: 2009Q1

REPORT INFORMATION
  Report Type: 
  Country: None (occurrence: None)
  Receive Date: 20090206
  Receipt Date: 20090127
  Transmission Date: 20090719
  Serious: Yes (Hospitalization, Other)
  Sender: FDA-Public Use
  Company Number: JPI-P-005956

PATIENT
  Age: 56 Year
  Sex: Female

DRUGS (11)
  1. XYREM [Suspect]
     Indication: CATAPLEXY
     Dosage: ORAL; 6 GM (3 GM, 2 IN 1 D), ORAL; 6 GM (3 GM, 1 IN 1 D), ORAL
     Route: 048
     Dates: end: 20080301
  2. XYREM [Suspect]
     Indication: NARCOLEPSY
     Dosage: ORAL; 6 GM (3 GM, 2 IN 1 D), ORAL; 6 GM (3 GM, 1 IN 1 D), ORAL
     Route: 048
     Dates: end: 20080301
  3. XYREM [Suspect]
     Indication: CATAPLEXY
     Dosage: ORAL; 6 GM (3 GM, 2 IN 1 D), ORAL; 6 GM (3 GM, 1 IN 1 D), ORAL
     Route: 048
     Dates: start: 19990101
  4. XYREM [Suspect]
     Indication: NARCOLEPSY
     Dosage: ORAL; 6 GM (3 GM, 2 IN 1 D), ORAL; 6 GM (3 GM, 1 IN 1 D), ORAL
     Route: 048
     Dates: start: 19990101
  5. XYREM [Suspect]
     Indication: CATAPLEXY
     Dosage: ORAL; 6 GM (3 GM, 2 IN 1 D), ORAL; 6 GM (3 GM, 1 IN 1 D), ORAL
     Route: 048
     Dates: start: 20080101
  6. XYREM [Suspect]
     Indication: NARCOLEPSY
     Dosage: ORAL; 6 GM (3 GM, 2 IN 1 D), ORAL; 6 GM (3 GM, 1 IN 1 D), ORAL
     Route: 048
     Dates: start: 20080101
  7. ANESTHESIA [Suspect]
     Indication: CHOLECYSTECTOMY
  8. ANESTHESIA [Suspect]
     Indication: SURGERY
  9. MODAFINIL [Concomitant]
  10. CLOMIPRAMINE HYDROCHLORIDE [Concomitant]
  11. UNSPECIFIED BLOOD PRESSURE MEDICATION [Concomitant]

REACTIONS (13)
  - ANAESTHESIA [None]
  - ANAESTHETIC COMPLICATION [None]
  - BLOOD PRESSURE INCREASED [None]
  - CATAPLEXY [None]
  - CHOLECYSTECTOMY [None]
  - COMA [None]
  - CORONARY ARTERY OCCLUSION [None]
  - HAEMORRHAGE [None]
  - NEOPLASM MALIGNANT [None]
  - NIGHTMARE [None]
  - NODULE [None]
  - PNEUMONIA [None]
  - PROCEDURAL COMPLICATION [None]
